FAERS Safety Report 24087773 (Version 3)
Quarter: 2024Q4

REPORT INFORMATION
  Report Type: Spontaneous
  Country: US (occurrence: US)
  Receive Date: 20240715
  Receipt Date: 20241026
  Transmission Date: 20250114
  Serious: Yes (Other)
  Sender: ALEXION PHARMACEUTICALS
  Company Number: US-AstraZeneca-2024-238931

PATIENT
  Age: 81 Year
  Weight: 65.317 kg

DRUGS (4)
  1. LOKELMA [Suspect]
     Active Substance: SODIUM ZIRCONIUM CYCLOSILICATE
     Indication: Hyperkalaemia
     Dosage: 10 GRAM, QD
  2. LOKELMA [Suspect]
     Active Substance: SODIUM ZIRCONIUM CYCLOSILICATE
     Dosage: 10 GRAM, QD
  3. LOKELMA [Suspect]
     Active Substance: SODIUM ZIRCONIUM CYCLOSILICATE
     Dosage: 10 GRAM, QD
  4. LOKELMA [Suspect]
     Active Substance: SODIUM ZIRCONIUM CYCLOSILICATE
     Dosage: 10 GRAM, QD

REACTIONS (3)
  - Renal tubular acidosis [Unknown]
  - Product use issue [Unknown]
  - Product physical consistency issue [Unknown]
